FAERS Safety Report 6771140-7 (Version None)
Quarter: 2010Q2

REPORT INFORMATION
  Report Type: 
  Country: None (occurrence: None)
  Receive Date: 20100614
  Receipt Date: 20100614
  Transmission Date: 20101027
  Serious: No
  Sender: FDA-Public Use
  Company Number: None

PATIENT
  Sex: Female
  Weight: 74.8435 kg

DRUGS (1)
  1. METFORMIN HCL [Suspect]
     Indication: TYPE 2 DIABETES MELLITUS
     Dosage: 500 MG 1 PER DAY
     Dates: start: 20100428, end: 20100519

REACTIONS (4)
  - DIPLOPIA [None]
  - DIZZINESS [None]
  - RETCHING [None]
  - VOMITING [None]
